FAERS Safety Report 12640849 (Version 6)
Quarter: 2017Q1

REPORT INFORMATION
  Report Type: Spontaneous
  Country: US (occurrence: US)
  Receive Date: 20160810
  Receipt Date: 20170131
  Transmission Date: 20170428
  Serious: Yes (Death, Hospitalization)
  Sender: FDA-Public Use
  Company Number: US-ACTELION-A-NJ2016-140150

PATIENT
  Age: 26 Year
  Sex: Female

DRUGS (5)
  1. OPSUMIT [Suspect]
     Active Substance: MACITENTAN
     Indication: PULMONARY ARTERIAL HYPERTENSION
     Dosage: 10 MG, QD
     Route: 048
     Dates: start: 20151209, end: 20161019
  2. ADCIRCA [Concomitant]
     Active Substance: TADALAFIL
  3. OPSUMIT [Suspect]
     Active Substance: MACITENTAN
     Dosage: 10 MG, QD
     Route: 048
     Dates: start: 20160721
  4. VELETRI [Suspect]
     Active Substance: EPOPROSTENOL
     Indication: PULMONARY ARTERIAL HYPERTENSION
     Dosage: 51.5 NG/KG, PER MIN
     Route: 042
     Dates: start: 20140411, end: 20161019
  5. OPSUMIT [Suspect]
     Active Substance: MACITENTAN
     Dosage: 10 MG, QD
     Route: 048
     Dates: start: 20160427

REACTIONS (14)
  - Pulmonary arterial hypertension [Fatal]
  - Right ventricular failure [Unknown]
  - Staphylococcal skin infection [Recovered/Resolved]
  - Flushing [Unknown]
  - Infection [Unknown]
  - Nausea [Unknown]
  - Diarrhoea [Unknown]
  - Catheter site infection [Recovered/Resolved]
  - Catheter placement [Unknown]
  - Device issue [Unknown]
  - Condition aggravated [Fatal]
  - Fluid overload [Not Recovered/Not Resolved]
  - Multiple organ dysfunction syndrome [Fatal]
  - Paracentesis [Unknown]

NARRATIVE: CASE EVENT DATE: 201604
